FAERS Safety Report 8835620 (Version 2)
Quarter: 2013Q2

REPORT INFORMATION
  Report Type: Spontaneous
  Country: BR (occurrence: BR)
  Receive Date: 20121011
  Receipt Date: 20130401
  Transmission Date: 20140414
  Serious: Yes (Other)
  Sender: FDA-Public Use
  Company Number: PHHY2012BR089633

PATIENT
  Age: 20 Year
  Sex: Female

DRUGS (3)
  1. SANDOSTATIN LAR [Suspect]
     Indication: PITUITARY TUMOUR
     Dosage: 30 MG, QMO (ONCE TIME A MONTH)
     Route: 030
  2. METFORMIN [Concomitant]
     Indication: DIABETES MELLITUS
     Dosage: 4 DF, DAILY (1 TABLET IN THE MORNING AND 3 TABLETS AT NIGHT)
     Dates: start: 201109
  3. INSULIN [Concomitant]
     Indication: DIABETES MELLITUS
     Dosage: 94 U, DAILY (58 UNITS IN THE MORNING, 20 UNITS BEFORE LUNCH AND 16 UNITS BEFORE SUPPER)
     Dates: start: 201109

REACTIONS (2)
  - Convulsion [Recovered/Resolved]
  - Hypoglycaemia [Recovered/Resolved]
